FAERS Safety Report 6025869-9 (Version None)
Quarter: 2008Q4

REPORT INFORMATION
  Report Type: 
  Country: None (occurrence: None)
  Receive Date: 20081229
  Receipt Date: 20081210
  Transmission Date: 20090506
  Serious: Yes (Other)
  Sender: FDA-Public Use
  Company Number: JPI-P-005456

PATIENT
  Age: 52 Year
  Sex: Male

DRUGS (2)
  1. XYREM [Suspect]
     Indication: NARCOLEPSY
     Dosage: 4.5 GM (2.25 GM, 2 IN 1 D), ORAL; 18 GM (9 GM, 2 IN 1 D), ORAL
     Route: 048
     Dates: start: 20050405
  2. XYREM [Suspect]
     Indication: NARCOLEPSY
     Dosage: 4.5 GM (2.25 GM, 2 IN 1 D), ORAL; 18 GM (9 GM, 2 IN 1 D), ORAL
     Route: 048
     Dates: start: 20050517

REACTIONS (2)
  - CONDITION AGGRAVATED [None]
  - CONVULSION [None]
